FAERS Safety Report 8925764 (Version 2)
Quarter: 2013Q1

REPORT INFORMATION
  Report Type: Report from Study
  Country: US (occurrence: US)
  Receive Date: 20121126
  Receipt Date: 20130319
  Transmission Date: 20140127
  Serious: Yes (Hospitalization)
  Sender: FDA-Public Use
  Company Number: US-ABBOTT-12P-163-1010677-00

PATIENT
  Age: 37 Year
  Sex: Female

DRUGS (4)
  1. HUMIRA [Suspect]
     Indication: CROHN^S DISEASE
     Dates: start: 20120926, end: 20120926
  2. HUMIRA [Suspect]
     Dates: start: 20121010, end: 20121010
  3. HUMIRA [Suspect]
     Dates: end: 201210
  4. LEVOTHYROXINE [Concomitant]
     Indication: HYPOTHYROIDISM
     Dosage: DAILY

REACTIONS (1)
  - Intestinal obstruction [Unknown]
